FAERS Safety Report 7774543-7 (Version None)
Quarter: 2011Q3

REPORT INFORMATION
  Report Type: 
  Country: None (occurrence: None)
  Receive Date: 20110923
  Receipt Date: 20110923
  Transmission Date: 20111222
  Serious: Yes (Other)
  Sender: FDA-Public Use
  Company Number: None

PATIENT
  Age: 26 Year
  Sex: Female
  Weight: 55.338 kg

DRUGS (1)
  1. LEVOFLOXACIN [Suspect]

REACTIONS (4)
  - PARAESTHESIA [None]
  - ARTHROPATHY [None]
  - MUSCLE DISORDER [None]
  - TENDONITIS [None]
